FAERS Safety Report 8162599-1 (Version None)
Quarter: 2012Q1

REPORT INFORMATION
  Report Type: 
  Country: None (occurrence: None)
  Receive Date: 20120224
  Receipt Date: 20120214
  Transmission Date: 20120608
  Serious: Yes (Death)
  Sender: FDA-Public Use
  Company Number: US-NOVOPROD-342564

PATIENT
  Age: 36 Year
  Sex: Female

DRUGS (1)
  1. NOVOSEVEN RT [Suspect]
     Indication: ANAPHYLACTOID SYNDROME OF PREGNANCY
     Dosage: 7.2 MG

REACTIONS (1)
  - MULTI-ORGAN FAILURE [None]
